FAERS Safety Report 5453606-5 (Version None)
Quarter: 2007Q3

REPORT INFORMATION
  Report Type: 
  Country: None (occurrence: None)
  Receive Date: 20070917
  Receipt Date: 20070906
  Transmission Date: 20080115
  Serious: Yes (Other)
  Sender: FDA-Public Use
  Company Number: US-JNJFOC-20070803576

PATIENT
  Sex: Female
  Weight: 69.4 kg

DRUGS (7)
  1. FENTANYL TRANSDERMAL SYSTEM [Suspect]
     Route: 062
  2. FENTANYL TRANSDERMAL SYSTEM [Suspect]
     Indication: BACK PAIN
     Route: 062
  3. NORVASC [Concomitant]
     Indication: BLOOD PRESSURE
     Route: 048
  4. LISINOPRIL [Concomitant]
     Indication: BLOOD PRESSURE
     Route: 048
  5. SOTALOL HYDROCHLORIDE [Concomitant]
     Indication: CARDIAC FAILURE CONGESTIVE
     Route: 048
  6. DIGITEK [Concomitant]
     Indication: ATRIAL FIBRILLATION
     Route: 048
  7. LASIX [Concomitant]
     Indication: OEDEMA
     Route: 048

REACTIONS (5)
  - ABDOMINAL DISTENSION [None]
  - CUSHINGOID [None]
  - DYSPHONIA [None]
  - JOINT SWELLING [None]
  - WEIGHT INCREASED [None]
